FAERS Safety Report 23798853 (Version 3)
Quarter: 2024Q3

REPORT INFORMATION
  Report Type: Spontaneous
  Country: CN (occurrence: CN)
  Receive Date: 20240430
  Receipt Date: 20240809
  Transmission Date: 20241017
  Serious: Yes (Life-Threatening, Hospitalization)
  Sender: BAYER
  Company Number: CN-BAYER-2024A064390

PATIENT
  Age: 62 Year

DRUGS (2)
  1. ULTRAVIST [Suspect]
     Active Substance: IOPROMIDE
     Indication: Computerised tomogram heart
     Dosage: 45 ML, ONCE
     Route: 042
     Dates: start: 20240428, end: 20240428
  2. ULTRAVIST [Suspect]
     Active Substance: IOPROMIDE
     Indication: Coronary artery disease

REACTIONS (3)
  - Cardiac arrest [Not Recovered/Not Resolved]
  - Loss of consciousness [Not Recovered/Not Resolved]
  - Shock [Not Recovered/Not Resolved]

NARRATIVE: CASE EVENT DATE: 20240428
